FAERS Safety Report 5511365-1 (Version None)
Quarter: 2007Q4

REPORT INFORMATION
  Report Type: 
  Country: None (occurrence: None)
  Receive Date: 20071109
  Receipt Date: 20070920
  Transmission Date: 20080405
  Serious: No
  Sender: FDA-Public Use
  Company Number: A0683355A

PATIENT
  Age: 39 Year
  Sex: Male

DRUGS (2)
  1. ALTABAX [Suspect]
     Indication: INFECTED INSECT BITE
     Dosage: 10MG TWICE PER DAY
     Route: 061
     Dates: start: 20070905
  2. TRICOR [Concomitant]

REACTIONS (1)
  - DRUG INEFFECTIVE [None]
